FAERS Safety Report 15003790 (Version 1)
Quarter: 2018Q2

REPORT INFORMATION
  Report Type: Spontaneous
  Country: DE (occurrence: DE)
  Receive Date: 20180613
  Receipt Date: 20180613
  Transmission Date: 20180711
  Serious: Yes (Hospitalization)
  Sender: FDA-Public Use
  Company Number: DE-TEVA-2018-DE-905694

PATIENT
  Age: 96 Year
  Sex: Female

DRUGS (9)
  1. LORAZEPAM. [Suspect]
     Active Substance: LORAZEPAM
     Dosage: 1 MILLIGRAM DAILY;  0-0-0-1
     Route: 065
  2. METOPROLOL. [Concomitant]
     Active Substance: METOPROLOL
     Dosage: 47.5 MILLIGRAM DAILY;  0-1-0-0
     Route: 065
  3. FENTANYL. [Suspect]
     Active Substance: FENTANYL
     Dosage: 25 G/H, NK
     Route: 065
  4. RAMIPRIL. [Concomitant]
     Active Substance: RAMIPRIL
     Dosage: 1-0-1-0
     Route: 065
  5. PANTOPRAZOL [Concomitant]
     Active Substance: PANTOPRAZOLE SODIUM
     Dosage: 40 MILLIGRAM DAILY; 1-0-0-0
     Route: 065
  6. VIGANTOLETTEN [Concomitant]
     Active Substance: CHOLECALCIFEROL
     Dosage: 1000 IE, 1-0-0-0
     Route: 065
  7. XIPAMIDE [Concomitant]
     Active Substance: XIPAMIDE
     Dosage: 10 MILLIGRAM DAILY;  1-0-0-0
     Route: 065
  8. ASS 100 [Concomitant]
     Active Substance: ASPIRIN
     Dosage: 100 MILLIGRAM DAILY;  1-0-0-0
     Route: 065
  9. MAGNESIUM [Concomitant]
     Active Substance: MAGNESIUM
     Dosage: 1 DOSAGE FORMS DAILY; NK MG, 1-0-0-0
     Route: 065

REACTIONS (2)
  - Fall [Unknown]
  - Fracture [Unknown]
